FAERS Safety Report 16264517 (Version 1)
Quarter: 2019Q2

REPORT INFORMATION
  Report Type: Spontaneous
  Country: IT (occurrence: IT)
  Receive Date: 20190502
  Receipt Date: 20190502
  Transmission Date: 20190711
  Serious: Yes (Other)
  Sender: FDA-Public Use
  Company Number: IT-SILVERGATE PHARMACEUTICALS, INC.-2019SIL00018

PATIENT
  Age: 79 Year
  Sex: Female

DRUGS (1)
  1. METHOTREXATE. [Suspect]
     Active Substance: METHOTREXATE
     Indication: RHEUMATOID ARTHRITIS
     Dosage: 15 MG, 1X/DAY
     Route: 065

REACTIONS (5)
  - Toxicity to various agents [Recovering/Resolving]
  - Accidental overdose [Unknown]
  - Cerebral haematoma [Unknown]
  - Subarachnoid haemorrhage [Unknown]
  - Inappropriate schedule of product administration [Unknown]
